FAERS Safety Report 6505745-5 (Version None)
Quarter: 2009Q4

REPORT INFORMATION
  Report Type: 
  Country: None (occurrence: None)
  Receive Date: 20091218
  Receipt Date: 20091202
  Transmission Date: 20100525
  Serious: No
  Sender: FDA-Public Use
  Company Number: B0612412A

PATIENT
  Sex: Female

DRUGS (3)
  1. RELENZA [Suspect]
     Indication: INFLUENZA
     Dosage: 10MG TWICE PER DAY
     Route: 055
     Dates: start: 20091201
  2. UNKNOWN DRUG [Concomitant]
     Route: 048
     Dates: start: 20091201
  3. MUCOSTA [Concomitant]
     Route: 048
     Dates: start: 20091201

REACTIONS (1)
  - DRUG EXPOSURE DURING PREGNANCY [None]
